FAERS Safety Report 6395107-6 (Version None)
Quarter: 2009Q4

REPORT INFORMATION
  Report Type: 
  Country: None (occurrence: None)
  Receive Date: 20091009
  Receipt Date: 20090925
  Transmission Date: 20100525
  Serious: No
  Sender: FDA-Public Use
  Company Number: B0593508A

PATIENT
  Age: 13 Year
  Sex: Male

DRUGS (4)
  1. RELENZA [Suspect]
     Indication: INFLUENZA
     Route: 055
     Dates: start: 20090909
  2. HUSTAZOL [Concomitant]
     Route: 048
     Dates: start: 20090909
  3. CALONAL [Concomitant]
     Route: 065
  4. MUCOSOLVAN [Concomitant]
     Route: 048

REACTIONS (2)
  - HYPOAESTHESIA [None]
  - OVERDOSE [None]
